FAERS Safety Report 15980492 (Version 2)
Quarter: 2019Q1

REPORT INFORMATION
  Report Type: Spontaneous
  Country: JP (occurrence: JP)
  Receive Date: 20190219
  Receipt Date: 20190307
  Transmission Date: 20190418
  Serious: Yes (Hospitalization)
  Sender: FDA-Public Use
  Company Number: JP-PFIZER INC-2019066883

PATIENT
  Age: 62 Year
  Sex: Male

DRUGS (4)
  1. CELECOX [Concomitant]
     Active Substance: CELECOXIB
     Dosage: UNK
  2. XELJANZ [Suspect]
     Active Substance: TOFACITINIB CITRATE
     Indication: RHEUMATOID ARTHRITIS
     Dosage: 10 MG, DAILY
     Route: 048
  3. FOLIAMIN [Concomitant]
     Active Substance: FOLIC ACID
     Dosage: UNK
     Route: 048
  4. METOLATE [Concomitant]
     Active Substance: METHOTREXATE
     Dosage: 4 MG, UNK
     Route: 048

REACTIONS (1)
  - Infective spondylitis [Recovered/Resolved]

NARRATIVE: CASE EVENT DATE: 20190113
